FAERS Safety Report 24539092 (Version 1)
Quarter: 2024Q4

REPORT INFORMATION
  Report Type: Spontaneous
  Country: JP (occurrence: JP)
  Receive Date: 20241023
  Receipt Date: 20241023
  Transmission Date: 20250115
  Serious: Yes (Hospitalization, Other)
  Sender: ALEXION PHARMACEUTICALS
  Company Number: JP-ASTRAZENECA-240108567_010520_P_1

PATIENT

DRUGS (8)
  1. FULVESTRANT [Suspect]
     Active Substance: FULVESTRANT
     Indication: Breast cancer
     Dosage: DOSE UNKNOWN
  2. FULVESTRANT [Suspect]
     Active Substance: FULVESTRANT
     Dosage: DOSE UNKNOWN
  3. FULVESTRANT [Suspect]
     Active Substance: FULVESTRANT
     Dosage: DOSE UNKNOWN
  4. FULVESTRANT [Suspect]
     Active Substance: FULVESTRANT
     Dosage: DOSE UNKNOWN
  5. TRUQAP [Suspect]
     Active Substance: CAPIVASERTIB
     Indication: Breast cancer
     Dosage: DOSE UNKNOWN, ON A 4-DAYS-ON, 3-DAYS-OFF SCHEDULE
  6. TRUQAP [Suspect]
     Active Substance: CAPIVASERTIB
     Dosage: DOSE UNKNOWN, ON A 4-DAYS-ON, 3-DAYS-OFF SCHEDULE
  7. TRUQAP [Suspect]
     Active Substance: CAPIVASERTIB
     Dosage: DOSE UNKNOWN, ON A 4-DAYS-ON, 3-DAYS-OFF SCHEDULE
  8. TRUQAP [Suspect]
     Active Substance: CAPIVASERTIB
     Dosage: DOSE UNKNOWN, ON A 4-DAYS-ON, 3-DAYS-OFF SCHEDULE

REACTIONS (4)
  - Renal impairment [Unknown]
  - Rash [Unknown]
  - Diarrhoea [Unknown]
  - Stomatitis [Unknown]
